FAERS Safety Report 9445815 (Version 2)
Quarter: 2013Q4

REPORT INFORMATION
  Report Type: Spontaneous
  Country: BR (occurrence: BR)
  Receive Date: 20130807
  Receipt Date: 20131104
  Transmission Date: 20140711
  Serious: No
  Sender: FDA-Public Use
  Company Number: BR-B.I. PHARMACEUTICALS,INC./RIDGEFIELD-2013-BR-00884BR

PATIENT
  Age: 56 Year
  Sex: Female
  Weight: 58 kg

DRUGS (6)
  1. TRAYENTA [Suspect]
     Indication: DIABETES MELLITUS
     Dosage: 5 MG
     Route: 048
     Dates: start: 201210, end: 20130715
  2. METFORMIN [Concomitant]
     Indication: DIABETES MELLITUS
  3. DIOVAN 80 MG [Concomitant]
     Indication: HYPERTENSION
  4. HYDROCHLOROTHIAZIDE [Concomitant]
     Indication: HYPERTENSION
  5. ASPIRIN [Concomitant]
     Indication: SINUSITIS
  6. KOMBIGLYSE XR [Concomitant]
     Indication: DIABETES MELLITUS
     Dates: start: 2013

REACTIONS (7)
  - Swelling face [Recovered/Resolved]
  - Burning sensation [Recovered/Resolved]
  - Feeling cold [Recovered/Resolved]
  - Dysgeusia [Recovered/Resolved]
  - Fatigue [Recovered/Resolved]
  - Blood glucose increased [Unknown]
  - Serum ferritin increased [Unknown]
